FAERS Safety Report 25874194 (Version 2)
Quarter: 2025Q4

REPORT INFORMATION
  Report Type: Spontaneous
  Country: CA (occurrence: CA)
  Receive Date: 20251002
  Receipt Date: 20251013
  Transmission Date: 20260118
  Serious: Yes (Hospitalization, Other)
  Sender: PFIZER
  Company Number: CA-PFIZER INC-PV202500077363

PATIENT
  Age: 77 Year
  Sex: Male
  Weight: 91 kg

DRUGS (2)
  1. IXIFI [Suspect]
     Active Substance: INFLIXIMAB-QBTX
     Indication: Colitis ulcerative
     Dosage: 500 MG, EVERY 6 WEEKS
     Route: 042
     Dates: start: 20250711
  2. IXIFI [Suspect]
     Active Substance: INFLIXIMAB-QBTX
     Dosage: 500 MG, EVERY 6 WEEKS
     Route: 042
     Dates: start: 20251007

REACTIONS (3)
  - Intestinal obstruction [Unknown]
  - Volvulus [Recovered/Resolved]
  - Off label use [Unknown]
